FAERS Safety Report 7343777-8 (Version None)
Quarter: 2011Q1

REPORT INFORMATION
  Report Type: 
  Country: None (occurrence: None)
  Receive Date: 20110310
  Receipt Date: 20110303
  Transmission Date: 20110831
  Serious: Yes (Congenital Anomaly)
  Sender: FDA-Public Use
  Company Number: GB-ROCHE-107875

PATIENT

DRUGS (1)
  1. LARIAM [Suspect]
     Indication: MALARIA PROPHYLAXIS
     Dates: end: 19960301

REACTIONS (7)
  - BODY HEIGHT ABOVE NORMAL [None]
  - MENTAL RETARDATION [None]
  - DEVELOPMENTAL DELAY [None]
  - DYSMORPHISM [None]
  - HYPOTONIA NEONATAL [None]
  - VISION ABNORMAL NEONATAL [None]
  - MICROCEPHALY [None]
